FAERS Safety Report 14242051 (Version 1)
Quarter: 2017Q4

REPORT INFORMATION
  Report Type: Spontaneous
  Country: US (occurrence: US)
  Receive Date: 20171201
  Receipt Date: 20171201
  Transmission Date: 20180321
  Serious: Yes (Other)
  Sender: FDA-Public Use
  Company Number: US-TEVA-2017-US-829935

PATIENT
  Age: 12 Year
  Sex: Male

DRUGS (6)
  1. ETOPOSIDE. [Suspect]
     Active Substance: ETOPOSIDE
     Indication: RENAL CANCER
     Route: 065
  2. METHOTREXATE. [Concomitant]
     Active Substance: METHOTREXATE
     Indication: RENAL CANCER
     Route: 065
  3. VINCRISTINE [Suspect]
     Active Substance: VINCRISTINE
     Indication: RENAL CANCER
     Route: 065
  4. METHOTREXATE. [Concomitant]
     Active Substance: METHOTREXATE
     Indication: RENAL CANCER
     Route: 037
  5. DOXORUBICIN [Concomitant]
     Active Substance: DOXORUBICIN
     Indication: RENAL CANCER
     Route: 065
  6. PREDNISONE. [Concomitant]
     Active Substance: PREDNISONE
     Indication: RENAL CANCER
     Dosage: INITIAL DOSES UNKNOWN, AND LATER RECEIVED ADDITIONAL DOSES
     Route: 065

REACTIONS (4)
  - Neutropenia [Unknown]
  - Colitis [Unknown]
  - Neurotoxicity [Recovering/Resolving]
  - Pyrexia [Unknown]
